FAERS Safety Report 6649437-0 (Version None)
Quarter: 2010Q1

REPORT INFORMATION
  Report Type: 
  Country: None (occurrence: None)
  Receive Date: 20100322
  Receipt Date: 20100309
  Transmission Date: 20100710
  Serious: Yes (Other)
  Sender: FDA-Public Use
  Company Number: 231515J09USA

PATIENT
  Age: 55 Year
  Sex: Female

DRUGS (6)
  1. REBIF [Suspect]
     Indication: MULTIPLE SCLEROSIS
     Dosage: 22 MCG, 3 IN 1 WEEK, SUBCUTANEOUS
     Route: 058
     Dates: start: 20090330
  2. CYMBALTA [Concomitant]
  3. ABILIFY [Concomitant]
  4. LEXAPRO [Concomitant]
  5. VALIUM [Concomitant]
  6. KLONOPIN [Concomitant]

REACTIONS (4)
  - FALL [None]
  - HAEMORRHAGE [None]
  - ROAD TRAFFIC ACCIDENT [None]
  - WRIST FRACTURE [None]
